FAERS Safety Report 6771988-9 (Version None)
Quarter: 2010Q2

REPORT INFORMATION
  Report Type: 
  Country: None (occurrence: None)
  Receive Date: 20100616
  Receipt Date: 20100301
  Transmission Date: 20101027
  Serious: No
  Sender: FDA-Public Use
  Company Number: US-ASTRAZENECA-2009SE30723

PATIENT
  Age: 798 Month
  Sex: Female
  Weight: 60.8 kg

DRUGS (5)
  1. RHINOCORT [Suspect]
     Indication: RHINITIS
     Dosage: 2 SPRAY EACH NOSTRIL DAILY
     Route: 045
     Dates: start: 20091016, end: 20091030
  2. RHINOCORT [Suspect]
     Dosage: 2 SPRAY EACH NOSTRIL DAILY
     Route: 045
     Dates: start: 20091101
  3. PREMPHASE 14/14 [Concomitant]
  4. ASTEPRO [Concomitant]
  5. SINGULAIR [Concomitant]

REACTIONS (5)
  - ASTHMA [None]
  - CHEST DISCOMFORT [None]
  - COUGH [None]
  - DYSPNOEA [None]
  - OROPHARYNGEAL PAIN [None]
